FAERS Safety Report 9343897 (Version 1)
Quarter: 2013Q2

REPORT INFORMATION
  Report Type: Spontaneous
  Country: US (occurrence: US)
  Receive Date: 20130612
  Receipt Date: 20130612
  Transmission Date: 20140414
  Serious: Yes (Death, Other)
  Sender: FDA-Public Use
  Company Number: US-JNJFOC-20130522028

PATIENT
  Sex: Female

DRUGS (8)
  1. DOXORUBICIN [Suspect]
     Indication: HER-2 POSITIVE BREAST CANCER
     Dosage: ON DAY 1 FOR 4 CYCLES
     Route: 042
  2. CYCLOPHOSPHAMIDE [Suspect]
     Indication: HER-2 POSITIVE BREAST CANCER
     Dosage: EVERY 2-3 WEEKS FOR 4 CYCLES
     Route: 065
  3. PACLITAXEL [Suspect]
     Indication: HER-2 POSITIVE BREAST CANCER
     Route: 065
  4. TRASTUZUMAB [Suspect]
     Indication: HER-2 POSITIVE BREAST CANCER
     Dosage: FOR 40 WEEKS;
     Route: 065
  5. TRASTUZUMAB [Suspect]
     Indication: HER-2 POSITIVE BREAST CANCER
     Dosage: LOADING DOSE ON WEEK 1
     Route: 065
  6. TRASTUZUMAB [Suspect]
     Indication: HER-2 POSITIVE BREAST CANCER
     Route: 065
  7. LAPATINIB [Suspect]
     Indication: HER-2 POSITIVE BREAST CANCER
     Dosage: FOR 40 WEEKS
     Route: 048
  8. LAPATINIB [Suspect]
     Indication: HER-2 POSITIVE BREAST CANCER
     Route: 048

REACTIONS (22)
  - Breast cancer [Fatal]
  - Ventricular dysfunction [Unknown]
  - Thrombosis [Unknown]
  - Left ventricular failure [Unknown]
  - Fatigue [Unknown]
  - Diarrhoea [Unknown]
  - Neurotoxicity [Unknown]
  - Arthralgia [Unknown]
  - Acne [Unknown]
  - Myalgia [Unknown]
  - Bone pain [Unknown]
  - Ejection fraction decreased [Unknown]
  - Dyspnoea [Unknown]
  - Neutropenia [Unknown]
  - Alopecia [Unknown]
  - Anaemia [Unknown]
  - Nausea [Unknown]
  - Leukopenia [Unknown]
  - Alanine aminotransferase increased [Unknown]
  - Aspartate aminotransferase increased [Unknown]
  - HER-2 positive breast cancer [Unknown]
  - Diastolic dysfunction [Unknown]
